FAERS Safety Report 17439505 (Version 8)
Quarter: 2021Q4

REPORT INFORMATION
  Report Type: Other
  Country: CA (occurrence: None)
  Receive Date: 20200220
  Receipt Date: 20211203
  Transmission Date: 20220303
  Serious: Yes (Hospitalization, Other)
  Sender: FDA-Public Use
  Company Number: CA-ROCHE-2548600

PATIENT
  Age: 38 Year
  Sex: Male

DRUGS (4)
  1. OCREVUS [Suspect]
     Active Substance: OCRELIZUMAB
     Indication: Relapsing-remitting multiple sclerosis
     Dosage: THEN 600 MG EVERY 6 MONTHS
     Route: 042
     Dates: start: 20200106
  2. OCREVUS [Suspect]
     Active Substance: OCRELIZUMAB
     Route: 042
  3. TERAZOSIN [Concomitant]
     Active Substance: TERAZOSIN HYDROCHLORIDE
     Dates: start: 20200206, end: 20200209
  4. AMOXIL [Concomitant]
     Active Substance: AMOXICILLIN
     Dates: start: 20200209

REACTIONS (6)
  - Pharyngitis [Recovering/Resolving]
  - Streptococcal infection [Recovering/Resolving]
  - Neutropenia [Unknown]
  - Bronchitis [Recovering/Resolving]
  - Bronchospasm [Recovering/Resolving]
  - Pyrexia [Recovered/Resolved]

NARRATIVE: CASE EVENT DATE: 20200204
